FAERS Safety Report 9580479 (Version 1)
Quarter: 2013Q3

REPORT INFORMATION
  Report Type: Spontaneous
  Country: US (occurrence: None)
  Receive Date: 20130916
  Receipt Date: 20130916
  Transmission Date: 20140515
  Serious: Yes (Other)
  Sender: FDA-Public Use
  Company Number: JPI-P-030454

PATIENT
  Age: 15 Year
  Sex: Male
  Weight: 54.43 kg

DRUGS (5)
  1. XYREM [Suspect]
     Indication: CATAPLEXY
     Dates: start: 20110525
  2. CYMBALTA (DULOXETINE HYDROCHLORIDE) [Concomitant]
  3. EFFEXOR (VENLAFAXINE HYDROCHLORIDE) UNKNOWN [Concomitant]
  4. NUVIGIL (ARMADAFINIL) [Concomitant]
  5. STRATTERA (ATOMOXETINE HCL) [Concomitant]

REACTIONS (5)
  - Sleep apnoea syndrome [None]
  - Condition aggravated [None]
  - Tooth disorder [None]
  - Drug ineffective [None]
  - Cataplexy [None]
